FAERS Safety Report 10177282 (Version 1)
Quarter: 2014Q2

REPORT INFORMATION
  Report Type: Spontaneous
  Country: GB (occurrence: GB)
  Receive Date: 20140516
  Receipt Date: 20140516
  Transmission Date: 20141212
  Serious: Yes (Death)
  Sender: FDA-Public Use
  Company Number: GB-GLAXOSMITHKLINE-B0992880A

PATIENT
  Age: 66 Year
  Sex: Male
  Weight: 115 kg

DRUGS (10)
  1. RELVAR ELLIPTA [Suspect]
     Indication: CHRONIC OBSTRUCTIVE PULMONARY DISEASE
     Route: 055
     Dates: start: 20140311
  2. AVAMYS [Concomitant]
     Route: 045
  3. SERETIDE [Concomitant]
     Dosage: 4IUAX PER DAY
     Route: 055
     Dates: end: 20140310
  4. CO-AMILOFRUSE [Concomitant]
     Dosage: 1IUAX PER DAY
  5. GLIMEPIRIDE [Concomitant]
     Dosage: 2MG PER DAY
  6. SALBUTAMOL [Concomitant]
     Route: 055
  7. DOXAZOSIN [Concomitant]
     Dosage: 2MG PER DAY
  8. RAMIPRIL [Concomitant]
     Dosage: 10MG PER DAY
  9. ATORVASTATIN [Concomitant]
     Dosage: 40MG PER DAY
  10. GABAPENTIN [Concomitant]
     Dosage: 900MG PER DAY

REACTIONS (3)
  - Abdominal pain upper [Not Recovered/Not Resolved]
  - Volvulus [Not Recovered/Not Resolved]
  - Sepsis [Fatal]
